FAERS Safety Report 14609239 (Version 2)
Quarter: 2018Q2

REPORT INFORMATION
  Report Type: Report from Study
  Country: NL (occurrence: NL)
  Receive Date: 20180307
  Receipt Date: 20180412
  Transmission Date: 20180711
  Serious: Yes (Other)
  Sender: FDA-Public Use
  Company Number: NL-ASTELLAS-2018US010563

PATIENT
  Age: 47 Year
  Sex: Male

DRUGS (2)
  1. TACROLIMUS. [Suspect]
     Active Substance: TACROLIMUS
     Indication: RENAL TRANSPLANT
     Dosage: 1 UNIT NOT GIVEN, ONCE DAILY
     Route: 065
     Dates: start: 20170112, end: 20170930
  2. PROGRAF [Concomitant]
     Active Substance: TACROLIMUS\TACROLIMUS ANHYDROUS
     Indication: PRODUCT USED FOR UNKNOWN INDICATION
     Route: 065
     Dates: start: 20170929

REACTIONS (2)
  - Fluid retention [Recovered/Resolved]
  - Joint effusion [Recovered/Resolved]

NARRATIVE: CASE EVENT DATE: 20170929
